FAERS Safety Report 8501998-2 (Version None)
Quarter: 2012Q3

REPORT INFORMATION
  Report Type: 
  Country: None (occurrence: None)
  Receive Date: 20120711
  Receipt Date: 20120620
  Transmission Date: 20120928
  Serious: Yes (Other)
  Sender: FDA-Public Use
  Company Number: CA-JNJFOC-20120610466

PATIENT
  Sex: Male
  Weight: 101 kg

DRUGS (5)
  1. REMICADE [Suspect]
     Indication: CROHN'S DISEASE
     Route: 042
  2. IMURAN [Concomitant]
     Route: 065
  3. OMEPRAZOLE (PRISOLEC) [Concomitant]
     Route: 065
  4. IRON SUPPLEMENT [Concomitant]
     Route: 065
  5. VITAMIN B-12 [Concomitant]
     Route: 065

REACTIONS (1)
  - PNEUMONIA [None]
